FAERS Safety Report 5823482-7 (Version None)
Quarter: 2008Q3

REPORT INFORMATION
  Report Type: 
  Country: None (occurrence: None)
  Receive Date: 20080725
  Receipt Date: 20080715
  Transmission Date: 20090109
  Serious: Yes (Hospitalization, Other)
  Sender: FDA-Public Use
  Company Number: ES-ELI_LILLY_AND_COMPANY-ES200807003423

PATIENT
  Age: 74 Year
  Sex: Female

DRUGS (2)
  1. FORTEO [Suspect]
     Indication: OSTEOPOROSIS
     Dosage: 20 UG, UNKNOWN
     Route: 058
     Dates: start: 20080602
  2. VITAMIN TAB [Concomitant]
     Indication: VISUAL ACUITY REDUCED
     Dosage: UNK, UNKNOWN
     Route: 065

REACTIONS (5)
  - DISCOMFORT [None]
  - HEADACHE [None]
  - NEPHRITIC SYNDROME [None]
  - NEPHROLITHIASIS [None]
  - URINARY TRACT INFECTION [None]
